FAERS Safety Report 14163341 (Version 1)
Quarter: 2017Q4

REPORT INFORMATION
  Report Type: Spontaneous
  Country: US (occurrence: US)
  Receive Date: 20171106
  Receipt Date: 20171106
  Transmission Date: 20180321
  Serious: Yes (Life-Threatening, Hospitalization)
  Sender: FDA-Public Use
  Company Number: US-MYLANLABS-2017M1068731

PATIENT
  Age: 10 Month
  Sex: Female

DRUGS (1)
  1. KETAMINE [Suspect]
     Active Substance: KETAMINE
     Indication: PRODUCT USED FOR UNKNOWN INDICATION
     Route: 048

REACTIONS (5)
  - Accidental exposure to product by child [Recovering/Resolving]
  - Encephalomalacia [Recovering/Resolving]
  - Cytotoxic oedema [Recovering/Resolving]
  - Brain oedema [Recovering/Resolving]
  - Hydrocephalus [Recovering/Resolving]
